FAERS Safety Report 12771950 (Version 1)
Quarter: 2016Q3

REPORT INFORMATION
  Report Type: Spontaneous
  Country: US (occurrence: US)
  Receive Date: 20160922
  Receipt Date: 20160922
  Transmission Date: 20161109
  Serious: Yes (Other)
  Sender: FDA-Public Use
  Company Number: US-009507513-1609USA009064

PATIENT
  Age: 40 Year
  Sex: Female
  Weight: 121.54 kg

DRUGS (2)
  1. NEXPLANON [Suspect]
     Active Substance: ETONOGESTREL
     Indication: ABDOMINAL PAIN
  2. NEXPLANON [Suspect]
     Active Substance: ETONOGESTREL
     Indication: CONTRACEPTION
     Dosage: 1 DF, 3 YEARS, IN LEFT ARM
     Route: 059
     Dates: start: 20140606

REACTIONS (6)
  - Chest pain [Unknown]
  - Pain in extremity [Unknown]
  - Weight increased [Unknown]
  - Thrombosis [Unknown]
  - Chest discomfort [Unknown]
  - Product use issue [Unknown]

NARRATIVE: CASE EVENT DATE: 20140606
